FAERS Safety Report 7229601-2 (Version None)
Quarter: 2011Q1

REPORT INFORMATION
  Report Type: 
  Country: None (occurrence: None)
  Receive Date: 20110117
  Receipt Date: 20110113
  Transmission Date: 20110831
  Serious: No
  Sender: FDA-Public Use
  Company Number: US-JNJFOC-20110103830

PATIENT
  Sex: Male
  Weight: 68.04 kg

DRUGS (2)
  1. FENTANYL-100 [Suspect]
     Indication: RADICULAR PAIN
     Dosage: 100 UG/HR + 50 UG/HR
     Route: 062
  2. UNKNOWN MEDICATION [Concomitant]

REACTIONS (2)
  - WRONG TECHNIQUE IN DRUG USAGE PROCESS [None]
  - PRODUCT ADHESION ISSUE [None]
